FAERS Safety Report 8353362-7 (Version None)
Quarter: 2012Q2

REPORT INFORMATION
  Report Type: 
  Country: None (occurrence: None)
  Receive Date: 20120511
  Receipt Date: 20120511
  Transmission Date: 20120825
  Serious: Yes (Death, Other)
  Sender: FDA-Public Use
  Company Number: PHHY2011AU111940

PATIENT
  Sex: Female

DRUGS (6)
  1. ZOLEDRONOC ACID [Suspect]
     Indication: OSTEOPOROSIS
     Dosage: 5 MG, UNK
     Route: 042
     Dates: start: 20081222
  2. RABEPRAZOLE SODIUM [Concomitant]
     Indication: GASTROOESOPHAGEAL REFLUX DISEASE
     Dosage: UNK UKN, QD
     Route: 048
  3. TEMAZEPAM [Concomitant]
     Indication: SLEEP DISORDER
     Dosage: UNK UKN, UNK
  4. VITAMIN B-12 [Concomitant]
     Indication: VITAMIN B12 DECREASED
     Dosage: UNK UKN, UNK
  5. VITAMIN D [Concomitant]
     Indication: VITAMIN D DECREASED
     Dosage: UNK UKN, UNK
     Route: 048
  6. ZOLEDRONOC ACID [Suspect]
     Dosage: 5 MG, UNK
     Route: 042
     Dates: start: 20100330

REACTIONS (4)
  - GASTROINTESTINAL DISORDER [None]
  - MALNUTRITION [None]
  - FALL [None]
  - WRIST FRACTURE [None]
